FAERS Safety Report 9454884 (Version 1)
Quarter: 2013Q3

REPORT INFORMATION
  Report Type: Report from Study
  Country: US (occurrence: US)
  Receive Date: 20130813
  Receipt Date: 20130813
  Transmission Date: 20140515
  Serious: No
  Sender: FDA-Public Use
  Company Number: US-009507513-1308USA002390

PATIENT
  Age: 21 Year
  Sex: Female
  Weight: 104.31 kg

DRUGS (2)
  1. IMPLANON [Suspect]
     Dosage: UNK
     Dates: end: 20130805
  2. IMPLANON [Suspect]
     Dosage: UNK
     Dates: start: 20130805

REACTIONS (1)
  - Medical device removal [Unknown]
